FAERS Safety Report 15892981 (Version 1)
Quarter: 2019Q1

REPORT INFORMATION
  Report Type: Report from Study
  Country: US (occurrence: US)
  Receive Date: 20190130
  Receipt Date: 20190130
  Transmission Date: 20190417
  Serious: No
  Sender: FDA-Public Use
  Company Number: US-EXELIXIS-CABO-18017206

PATIENT
  Sex: Male

DRUGS (8)
  1. LISINOPRIL. [Concomitant]
     Active Substance: LISINOPRIL
  2. DAILY-VITE [Concomitant]
  3. CARVEDILOL. [Concomitant]
     Active Substance: CARVEDILOL
  4. HYDROCODONE BITARTRATE AND ACETAMINOPHEN [Concomitant]
     Active Substance: ACETAMINOPHEN\HYDROCODONE BITARTRATE
  5. BIAFINE [Concomitant]
     Active Substance: TROLAMINE
  6. CABOMETYX [Suspect]
     Active Substance: CABOZANTINIB S-MALATE
     Indication: RENAL CANCER
     Dosage: 80 MG, QD (1 TAB OF 20 MG AND 1 TAB OF 60 MG)
     Route: 048
     Dates: start: 20171011
  7. GABAPENTIN. [Concomitant]
     Active Substance: GABAPENTIN
  8. LEVOTHYROXINE. [Concomitant]
     Active Substance: LEVOTHYROXINE

REACTIONS (2)
  - Diarrhoea [Not Recovered/Not Resolved]
  - Dry mouth [Not Recovered/Not Resolved]
